FAERS Safety Report 23275901 (Version 2)
Quarter: 2024Q1

REPORT INFORMATION
  Report Type: Spontaneous
  Country: IT (occurrence: IT)
  Receive Date: 20231208
  Receipt Date: 20240103
  Transmission Date: 20240410
  Serious: Yes (Death, Other)
  Sender: FDA-Public Use
  Company Number: IT-Blueprint Medicines Corporation-LT-IT-2023-001940

PATIENT
  Age: 61 Year
  Sex: Male

DRUGS (1)
  1. MIDOSTAURIN [Suspect]
     Active Substance: MIDOSTAURIN
     Indication: Mantle cell lymphoma
     Dosage: 50 MG, BID (100 MG- 50MG 2 IN 1 DAY)
     Route: 065
     Dates: start: 202107

REACTIONS (5)
  - Disease progression [Fatal]
  - Ascites [Unknown]
  - Confusional state [Unknown]
  - Metabolic acidosis [Unknown]
  - Pleural effusion [Unknown]
